FAERS Safety Report 17541736 (Version 2)
Quarter: 2020Q4

REPORT INFORMATION
  Report Type: Spontaneous
  Country: DE (occurrence: DE)
  Receive Date: 20200313
  Receipt Date: 20201109
  Transmission Date: 20210113
  Serious: Yes (Other)
  Sender: FDA-Public Use
  Company Number: DE-BAUSCH-BL-2020-007551

PATIENT
  Age: 67 Year
  Sex: Male
  Weight: 95 kg

DRUGS (5)
  1. PREDNISOLONE. [Concomitant]
     Active Substance: PREDNISOLONE
     Indication: COLITIS ULCERATIVE
     Dosage: 5 TO 15 MG
     Dates: start: 2009
  2. AZATHIOPRIN [Suspect]
     Active Substance: AZATHIOPRINE
     Indication: COLITIS ULCERATIVE
     Route: 065
     Dates: start: 2011, end: 201501
  3. MESALAZIN [Suspect]
     Active Substance: MESALAMINE
     Indication: COLITIS ULCERATIVE
     Route: 048
     Dates: start: 2009
  4. AZATHIOPRIN [Suspect]
     Active Substance: AZATHIOPRINE
     Route: 065
     Dates: start: 201206, end: 201501
  5. REMICADE [Suspect]
     Active Substance: INFLIXIMAB
     Indication: COLITIS ULCERATIVE
     Dosage: WEEK 0, 2 AND 6
     Route: 042
     Dates: start: 201310, end: 201411

REACTIONS (2)
  - Drug ineffective [Unknown]
  - Colitis ulcerative [Recovering/Resolving]

NARRATIVE: CASE EVENT DATE: 201409
